FAERS Safety Report 15172507 (Version 1)
Quarter: 2018Q3

REPORT INFORMATION
  Report Type: Report from Study
  Country: IT (occurrence: IT)
  Receive Date: 20180720
  Receipt Date: 20180720
  Transmission Date: 20181010
  Serious: Yes (Hospitalization, Other)
  Sender: FDA-Public Use
  Company Number: IT-PFIZER INC-2017396183

PATIENT
  Age: 27 Year
  Sex: Female
  Weight: 82 kg

DRUGS (3)
  1. MYSODELLE [Suspect]
     Active Substance: MISOPROSTOL
     Indication: LABOUR INDUCTION
     Dosage: 200 UG, TOTAL, ONCE/SINGLE
     Route: 067
     Dates: start: 20170815, end: 20170816
  2. PREPIDIL [Suspect]
     Active Substance: DINOPROSTONE
     Indication: LABOUR INDUCTION
     Dosage: 2 MG, 4X/DAY, EVERY 6 HOUR, 2 APPLICATIONS/TOTAL
     Route: 067
     Dates: start: 20170816, end: 20170816
  3. SYNTOCINON [Suspect]
     Active Substance: OXYTOCIN
     Indication: CAESAREAN SECTION
     Dosage: 100 MG, TOTAL, AT THE DOSE OF
     Route: 042
     Dates: start: 20170817, end: 20170817

REACTIONS (6)
  - Maternal exposure during pregnancy [None]
  - Epilepsy [Recovered/Resolved]
  - Uterine tachysystole [Recovered/Resolved]
  - Contraindicated product administered [Recovered/Resolved]
  - Failed induction of labour [Recovered/Resolved]
  - Peripheral venous disease [Recovered/Resolved]

NARRATIVE: CASE EVENT DATE: 20170815
